FAERS Safety Report 4919174-9 (Version None)
Quarter: 2006Q1

REPORT INFORMATION
  Report Type: 
  Country: None (occurrence: None)
  Receive Date: 20060113
  Receipt Date: 20051019
  Transmission Date: 20060701
  Serious: No
  Sender: FDA-Public Use
  Company Number: 2005SP002054

PATIENT
  Age: 70 Year
  Sex: Female
  Weight: 72.5755 kg

DRUGS (5)
  1. LUNESTA [Suspect]
     Indication: FIBROMYALGIA
     Dosage: 3 MG;HS;ORAL
     Route: 048
     Dates: start: 20050601, end: 20050101
  2. LUNESTA [Suspect]
     Indication: INSOMNIA
     Dosage: 3 MG;HS;ORAL
     Route: 048
     Dates: start: 20050601, end: 20050101
  3. ZOLOFT [Concomitant]
  4. ATORVASTATIN CALCIUM [Concomitant]
  5. VITAMINS [Concomitant]

REACTIONS (6)
  - ABNORMAL DREAMS [None]
  - CHEST PAIN [None]
  - DYSGEUSIA [None]
  - HEADACHE [None]
  - INSOMNIA [None]
  - PRURITUS [None]
